FAERS Safety Report 7018753-5 (Version None)
Quarter: 2010Q3

REPORT INFORMATION
  Report Type: 
  Country: None (occurrence: None)
  Receive Date: 20100928
  Receipt Date: 20100920
  Transmission Date: 20110219
  Serious: Yes (Other)
  Sender: FDA-Public Use
  Company Number: TR-TEVA-249795ISR

PATIENT
  Age: 57 Year
  Sex: Female

DRUGS (11)
  1. ETOPOSIDE [Suspect]
     Dosage: 200 MG/M2/DAY
  2. METHOTREXATE [Suspect]
  3. VINCRISTINE [Suspect]
     Dosage: 1.5 MG/M2/DAY (MAX 2 MG)
  4. DAUNORUBICIN HYDROCHLORIDE [Suspect]
     Dosage: 25 MG/M2/DAY
  5. ASPARAGINASE [Suspect]
     Dosage: 5 000 U/M2/DAY
  6. PREDNISOLONE [Suspect]
     Dosage: 60 MG/M2/DAY
  7. CYCLOPHOSPHAMIDE [Suspect]
     Dosage: 650 MG/M2/DAY
  8. CYTARABINE [Suspect]
     Dosage: 75 MG/M2/DAY
  9. CYTARABINE [Suspect]
     Dosage: 500 MG/M2/DAY
  10. MERCAPTOPURINE [Suspect]
     Dosage: 60 MG/M2/DAY
  11. MITOXANTRONE [Suspect]
     Dosage: 12 MG/M2/DAY

REACTIONS (1)
  - HEPATITIS B [None]
